FAERS Safety Report 8803479 (Version 2)
Quarter: 2012Q4

REPORT INFORMATION
  Report Type: 
  Country: US (occurrence: US)
  Receive Date: 20120924
  Receipt Date: 20121008
  Transmission Date: 20130627
  Serious: Yes (Death, Hospitalization)
  Sender: FDA-Public Use
  Company Number: US-ACTELION-A-US2012-71489

PATIENT
  Age: 44 Year
  Sex: Female

DRUGS (3)
  1. VELETRI [Suspect]
     Indication: PULMONARY ARTERIAL HYPERTENSION
     Dosage: 9 ng/kg, per min
     Route: 042
     Dates: start: 20120720
  2. COUMADIN [Concomitant]
  3. ADCIRCA [Concomitant]

REACTIONS (2)
  - Death [Fatal]
  - Abdominal pain [Unknown]
